FAERS Safety Report 7601757-9 (Version None)
Quarter: 2011Q3

REPORT INFORMATION
  Report Type: 
  Country: None (occurrence: None)
  Receive Date: 20110711
  Receipt Date: 20110705
  Transmission Date: 20111222
  Serious: Yes (Death, Hospitalization, Other)
  Sender: FDA-Public Use
  Company Number: US-PFIZER INC-2011146753

PATIENT
  Sex: Male

DRUGS (5)
  1. CHANTIX [Suspect]
     Indication: SMOKING CESSATION THERAPY
     Dosage: STARTER PACK, 1MG TABLETS , 1 TABLET TWICE DAILY
     Dates: start: 20061109, end: 20070104
  2. QUINAPRIL [Concomitant]
     Indication: HYPERTENSION
     Dosage: UNK
     Dates: start: 20020101, end: 20070120
  3. ACCUPRIL [Concomitant]
     Indication: HYPERTENSION
     Dosage: UNK
     Dates: start: 20020101, end: 20070120
  4. HUMALOG [Concomitant]
     Indication: TYPE 1 DIABETES MELLITUS
     Dosage: UNK
     Dates: start: 19770101, end: 20070124
  5. PRAVASTATIN SODIUM [Concomitant]
     Indication: ILL-DEFINED DISORDER
     Dosage: UNK
     Dates: start: 20060714, end: 20070120

REACTIONS (4)
  - INTENTIONAL OVERDOSE [None]
  - HYPOTHERMIA [None]
  - COMPLETED SUICIDE [None]
  - HYPOXIC-ISCHAEMIC ENCEPHALOPATHY [None]
